FAERS Safety Report 16938299 (Version 4)
Quarter: 2020Q1

REPORT INFORMATION
  Report Type: Report from Study
  Country: MX (occurrence: MX)
  Receive Date: 20191019
  Receipt Date: 20200113
  Transmission Date: 20200409
  Serious: Yes (Hospitalization, Other)
  Sender: FDA-Public Use
  Company Number: NVSC2019MX010025

PATIENT
  Sex: Female
  Weight: 47 kg

DRUGS (2)
  1. EXFORGE [Suspect]
     Active Substance: AMLODIPINE BESYLATE\VALSARTAN
     Indication: BLOOD PRESSURE DECREASED
     Dosage: 0.5 DF (AMLODIPINE 10 MG ,VALSARTAN 320 MG), BID, APPROXIMATELY 4 OR 5 YEARS AGO
     Route: 048
  2. EXFORGE [Suspect]
     Active Substance: AMLODIPINE BESYLATE\VALSARTAN
     Dosage: 1 DF, BID, (AMLODIPINE 10 MG ,VALSARTAN 320 MG), IN MORNING AND NIGHT
     Route: 048

REACTIONS (20)
  - Diarrhoea [Recovering/Resolving]
  - Vomiting [Recovering/Resolving]
  - Kidney infection [Unknown]
  - Blood pressure abnormal [Unknown]
  - Abdominal pain [Unknown]
  - Product prescribing error [Unknown]
  - Pyrexia [Unknown]
  - Grip strength decreased [Unknown]
  - Nausea [Unknown]
  - Gastritis [Unknown]
  - Malaise [Unknown]
  - Feeling abnormal [Recovering/Resolving]
  - Pain in extremity [Unknown]
  - General physical health deterioration [Recovering/Resolving]
  - Abdominal discomfort [Unknown]
  - Wrong technique in product usage process [Unknown]
  - Inappropriate schedule of product administration [Unknown]
  - Colitis [Recovering/Resolving]
  - Pain [Unknown]
  - Weight decreased [Unknown]
